FAERS Safety Report 10952315 (Version 1)
Quarter: 2015Q1

REPORT INFORMATION
  Report Type: Spontaneous
  Country: US (occurrence: US)
  Receive Date: 20150325
  Receipt Date: 20150325
  Transmission Date: 20150721
  Serious: No
  Sender: FDA-Public Use
  Company Number: US-AMGEN-USASP2015027605

PATIENT
  Sex: Female

DRUGS (3)
  1. RAYOS [Concomitant]
     Active Substance: PREDNISONE
     Dosage: UNK
  2. FELDENE [Concomitant]
     Active Substance: PIROXICAM
     Dosage: UNK
  3. ENBREL [Suspect]
     Active Substance: ETANERCEPT
     Indication: ANKYLOSING SPONDYLITIS
     Dosage: UNK
     Route: 065

REACTIONS (3)
  - Rubber sensitivity [Unknown]
  - Dry throat [Unknown]
  - Oropharyngeal pain [Unknown]
